FAERS Safety Report 5670785-5 (Version None)
Quarter: 2008Q2

REPORT INFORMATION
  Report Type: 
  Country: None (occurrence: None)
  Receive Date: 20080305
  Receipt Date: 20070523
  Transmission Date: 20081010
  Serious: Yes (Other)
  Sender: FDA-Public Use
  Company Number: BDI-009620

PATIENT
  Age: 51 Year
  Sex: Male
  Weight: 80 kg

DRUGS (3)
  1. ISOVUE-300 [Suspect]
     Indication: BACK PAIN
     Dosage: 125ML ONCE INTRAVENOUS
     Route: 042
     Dates: start: 20070523, end: 20070523
  2. ISOVUE-300 [Suspect]
     Indication: COMPUTERISED TOMOGRAM
     Dosage: 125ML ONCE INTRAVENOUS
     Route: 042
     Dates: start: 20070523, end: 20070523
  3. ISOVUE-300 [Suspect]
     Indication: HAEMATOCHEZIA
     Dosage: 125ML ONCE INTRAVENOUS
     Route: 042
     Dates: start: 20070523, end: 20070523

REACTIONS (1)
  - ANAPHYLACTOID REACTION [None]
